FAERS Safety Report 7304569-9 (Version None)
Quarter: 2011Q1

REPORT INFORMATION
  Report Type: 
  Country: None (occurrence: None)
  Receive Date: 20110222
  Receipt Date: 20101216
  Transmission Date: 20110831
  Serious: Yes (Hospitalization)
  Sender: FDA-Public Use
  Company Number: PHHY2010HU90589

PATIENT
  Age: 58 Year
  Sex: Female

DRUGS (3)
  1. CALCIUM [Concomitant]
     Dosage: UNK
     Dates: start: 20020101
  2. ACLASTA [Suspect]
     Indication: OSTEOPOROSIS
     Dosage: 5 MG
     Dates: start: 20100927
  3. TAXOL [Concomitant]
     Dosage: UNK
     Dates: start: 20020101

REACTIONS (3)
  - ARRHYTHMIA [None]
  - ARTHRALGIA [None]
  - MYALGIA [None]
